FAERS Safety Report 15814030 (Version 1)
Quarter: 2019Q1

REPORT INFORMATION
  Report Type: Spontaneous
  Country: US (occurrence: US)
  Receive Date: 20190111
  Receipt Date: 20190111
  Transmission Date: 20190417
  Serious: No
  Sender: FDA-Public Use
  Company Number: US-RISING PHARMACEUTICALS, INC.-2018RIS00454

PATIENT
  Age: 66 Year
  Sex: Male

DRUGS (2)
  1. CIPROFLOXACIN. [Suspect]
     Active Substance: CIPROFLOXACIN
     Indication: EYE INFECTION
     Dosage: 1 GTT, 4X/DAY
     Route: 047
  2. CIPROFLOXACIN. [Suspect]
     Active Substance: CIPROFLOXACIN
     Dosage: 1 GTT, 4X/DAY
     Route: 047
     Dates: end: 20181009

REACTIONS (6)
  - Extraocular muscle paresis [Recovering/Resolving]
  - Eye discharge [Recovering/Resolving]
  - Eye disorder [Recovering/Resolving]
  - Vision blurred [Recovering/Resolving]
  - Foreign body in eye [Recovering/Resolving]
  - Product outer packaging issue [Not Recovered/Not Resolved]

NARRATIVE: CASE EVENT DATE: 201810
